FAERS Safety Report 4993068-5 (Version None)
Quarter: 2006Q1

REPORT INFORMATION
  Report Type: 
  Country: None (occurrence: None)
  Receive Date: 20060313
  Receipt Date: 20060127
  Transmission Date: 20060701
  Serious: No
  Sender: FDA-Public Use
  Company Number: 2006-BP-00569BP

PATIENT
  Sex: Male

DRUGS (5)
  1. SPIRIVA [Suspect]
     Dosage: 18 MCG (18 MCG,1 CAP INH DAILY),IH
     Dates: start: 20060115
  2. ALBUTEROL SULFATE AUTOHALER [Concomitant]
  3. FLUTICASONE PROPIONATE [Concomitant]
  4. STARLIX [Concomitant]
  5. FLOMAX [Concomitant]

REACTIONS (1)
  - BACK PAIN [None]
